FAERS Safety Report 7850564-0 (Version None)
Quarter: 2011Q4

REPORT INFORMATION
  Report Type: 
  Country: None (occurrence: None)
  Receive Date: 20111024
  Receipt Date: 20111013
  Transmission Date: 20120403
  Serious: Yes (Disabling, Other)
  Sender: FDA-Public Use
  Company Number: ACO_27278_2011

PATIENT
  Age: 63 Year
  Sex: Female

DRUGS (14)
  1. AMANTADINE HCL [Concomitant]
  2. ASPIRIN [Concomitant]
  3. KLONOPIN [Concomitant]
  4. PROVIGIL [Concomitant]
  5. BACLOFEN [Concomitant]
  6. VALIUM [Concomitant]
  7. MEGACE [Concomitant]
  8. VICODIN [Concomitant]
  9. AMPYRA [Suspect]
     Indication: GAIT DISTURBANCE
     Dosage: 10 MG, Q 12 HRS
     Dates: start: 20111012, end: 20111013
  10. METHYLPREDNISOLONE [Concomitant]
  11. SIMETHICONE (SIMETICONE) [Concomitant]
  12. FENTANYL [Concomitant]
  13. PRILOSEC [Concomitant]
  14. XANAX [Concomitant]

REACTIONS (3)
  - ASTHENIA [None]
  - DIZZINESS [None]
  - HYPOKINESIA [None]
